FAERS Safety Report 10553519 (Version 1)
Quarter: 2014Q4

REPORT INFORMATION
  Report Type: Spontaneous
  Country: US (occurrence: None)
  Receive Date: 20141023
  Receipt Date: 20141023
  Transmission Date: 20150529
  Serious: No
  Sender: FDA-Public Use
  Company Number: AP356-01318-SPO-US

PATIENT
  Age: 49 Year
  Sex: Female
  Weight: 81 kg

DRUGS (5)
  1. CLARITIN (GLICLAZIDE) [Concomitant]
     Active Substance: GLICLAZIDE
  2. PROTONIX (PANTOPRAZOLE) [Concomitant]
  3. ZYRTEC [Concomitant]
     Active Substance: CETIRIZINE HYDROCHLORIDE
  4. BELVIQ [Suspect]
     Active Substance: LORCASERIN HYDROCHLORIDE
     Indication: WEIGHT DECREASED
     Dosage: UNKNOWN, 2 IN 1 D, ORAL
     Route: 048
     Dates: start: 20140826, end: 20140902
  5. FLONASE [Concomitant]
     Active Substance: FLUTICASONE PROPIONATE

REACTIONS (9)
  - Gastrooesophageal reflux disease [None]
  - Intentional underdose [None]
  - Abdominal pain upper [None]
  - Thirst [None]
  - Asthenia [None]
  - Drug ineffective [None]
  - Constipation [None]
  - Hunger [None]
  - Flatulence [None]

NARRATIVE: CASE EVENT DATE: 2014
